FAERS Safety Report 9155713 (Version 3)
Quarter: 2013Q2

REPORT INFORMATION
  Report Type: Report from Study
  Country: JP (occurrence: JP)
  Receive Date: 20130311
  Receipt Date: 20130429
  Transmission Date: 20140414
  Serious: Yes (Hospitalization)
  Sender: FDA-Public Use
  Company Number: JP-ABBOTT-13P-087-1060400-00

PATIENT
  Age: 39 Year
  Sex: Female

DRUGS (3)
  1. LUPRON DEPOT [Suspect]
     Indication: BREAST CANCER
     Route: 058
     Dates: start: 20120808, end: 20130123
  2. NOLVADEX [Concomitant]
     Indication: PROPHYLAXIS
     Route: 048
     Dates: start: 20120808, end: 20130225
  3. NOLVADEX [Concomitant]
     Indication: BREAST CANCER

REACTIONS (1)
  - Interstitial lung disease [Recovering/Resolving]
